FAERS Safety Report 8173922 (Version 3)
Quarter: 2013Q2

REPORT INFORMATION
  Report Type: Spontaneous
  Country: MX (occurrence: MX)
  Receive Date: 20111010
  Receipt Date: 20130405
  Transmission Date: 20140414
  Serious: Yes (Death)
  Sender: FDA-Public Use
  Company Number: PHHY2011MX88279

PATIENT
  Age: 68 Year
  Sex: Male

DRUGS (2)
  1. RASILEZ [Suspect]
     Indication: HYPERTENSION
     Dosage: 1 DF (300 MG), DAILY
     Route: 048
     Dates: start: 201107
  2. RANITIDINE [Concomitant]
     Dosage: 1 DF, DAILY
     Dates: start: 2009

REACTIONS (7)
  - Renal failure chronic [Fatal]
  - Blood creatinine increased [Fatal]
  - Hypertension [Fatal]
  - Haematemesis [Fatal]
  - Abdominal pain [Fatal]
  - Cough [Fatal]
  - Increased upper airway secretion [Fatal]
